FAERS Safety Report 10339089 (Version 1)
Quarter: 2014Q3

REPORT INFORMATION
  Report Type: Spontaneous
  Country: US (occurrence: US)
  Receive Date: 20140724
  Receipt Date: 20140724
  Transmission Date: 20150326
  Serious: No
  Sender: FDA-Public Use
  Company Number: US-BAYER-2014-108629

PATIENT
  Age: 64 Year
  Sex: Female
  Weight: 95 kg

DRUGS (2)
  1. CENTRUM [Concomitant]
     Active Substance: VITAMINS
  2. ALEVE [Suspect]
     Active Substance: NAPROXEN SODIUM
     Indication: ANALGESIC THERAPY
     Dosage: 1-2DF, PRN
     Route: 048

REACTIONS (2)
  - Product quality issue [None]
  - Wheezing [Not Recovered/Not Resolved]

NARRATIVE: CASE EVENT DATE: 201403
